FAERS Safety Report 9400170 (Version 2)
Quarter: 2013Q3

REPORT INFORMATION
  Report Type: Spontaneous
  Country: US (occurrence: US)
  Receive Date: 20130715
  Receipt Date: 20130919
  Transmission Date: 20140515
  Serious: Yes (Other)
  Sender: FDA-Public Use
  Company Number: US-TEVA-415548USA

PATIENT
  Sex: Male

DRUGS (3)
  1. NUVIGIL [Suspect]
     Indication: FATIGUE
     Dosage: 150 MILLIGRAM DAILY;
     Route: 048
     Dates: start: 2010
  2. NUVIGIL [Suspect]
     Dosage: 1/2 TABLET DAILY
  3. NUVIGIL [Suspect]
     Dosage: 1/4 TABLET DAILY

REACTIONS (6)
  - Atrial fibrillation [Recovered/Resolved]
  - Extrasystoles [Unknown]
  - Headache [Unknown]
  - Migraine [Unknown]
  - Fatigue [Unknown]
  - Hypertension [Unknown]
